FAERS Safety Report 9397761 (Version 1)
Quarter: 2013Q3

REPORT INFORMATION
  Report Type: Spontaneous
  Country: NL (occurrence: NL)
  Receive Date: 20130712
  Receipt Date: 20130712
  Transmission Date: 20140515
  Serious: Yes (Life-Threatening, Hospitalization)
  Sender: FDA-Public Use
  Company Number: NL-SANOFI-AVENTIS-2013SA068882

PATIENT
  Age: 83 Year
  Sex: Female
  Weight: 60 kg

DRUGS (5)
  1. FUROSEMIDE [Suspect]
     Indication: OEDEMA PERIPHERAL
     Dosage: DOSE: 1 DD 1
     Route: 048
     Dates: start: 201305
  2. ENALAPRIL [Interacting]
     Indication: HYPERTENSION
     Dosage: DOSE: 1 DD 1?STRENGTH: 20 MG
     Route: 048
     Dates: start: 19930101, end: 20130614
  3. METFORMIN HYDROCHLORIDE [Concomitant]
     Dosage: 2DDI
     Route: 048
     Dates: start: 20120101
  4. VITAMIN D3 [Concomitant]
     Dosage: 1DD1
     Route: 048
     Dates: start: 20130501
  5. SIMVASTATIN [Concomitant]
     Dosage: 1DD1

REACTIONS (3)
  - Pharyngeal oedema [Recovered/Resolved]
  - Drug interaction [Recovered/Resolved]
  - Swollen tongue [Recovered/Resolved]
